FAERS Safety Report 8173738 (Version 2)
Quarter: 2013Q4

REPORT INFORMATION
  Report Type: Spontaneous
  Country: US (occurrence: US)
  Receive Date: 20111010
  Receipt Date: 20131125
  Transmission Date: 20140711
  Serious: Yes (Other)
  Sender: FDA-Public Use
  Company Number: US-JNJFOC-20111000787

PATIENT
  Age: 46 Year
  Sex: Female
  Weight: 84.37 kg

DRUGS (5)
  1. FENTANYL TRANSDERMAL SYSTEM [Suspect]
     Indication: NECK PAIN
     Route: 062
     Dates: end: 2009
  2. DURAGESIC [Suspect]
     Indication: NECK PAIN
     Route: 062
     Dates: start: 2009
  3. SOMA [Concomitant]
     Indication: FIBROMYALGIA
     Route: 048
     Dates: start: 2003
  4. HYDROCODONE [Concomitant]
     Indication: FIBROMYALGIA
     Dosage: 10/500
     Route: 048
     Dates: start: 2003
  5. MOBIC [Concomitant]
     Indication: ARTHRITIS
     Route: 048
     Dates: start: 2003

REACTIONS (10)
  - Drug withdrawal syndrome [Not Recovered/Not Resolved]
  - Cervical myelopathy [Not Recovered/Not Resolved]
  - Dizziness [Not Recovered/Not Resolved]
  - Influenza [Not Recovered/Not Resolved]
  - Wrong technique in drug usage process [Recovered/Resolved]
  - Stress [Not Recovered/Not Resolved]
  - Headache [Not Recovered/Not Resolved]
  - Tremor [Not Recovered/Not Resolved]
  - Pain [Not Recovered/Not Resolved]
  - Product quality issue [Unknown]
